FAERS Safety Report 5088363-8 (Version None)
Quarter: 2006Q3

REPORT INFORMATION
  Report Type: 
  Country: None (occurrence: None)
  Receive Date: 20060822
  Receipt Date: 20060811
  Transmission Date: 20061208
  Serious: Yes (Other)
  Sender: FDA-Public Use
  Company Number: 2006BH012796

PATIENT
  Age: 72 Year
  Sex: Female

DRUGS (2)
  1. TAZICEF [Suspect]
     Indication: PERITONITIS
     Dosage: 4 GM; EVERY DAY; UNK
  2. VANCOMYCIN [Concomitant]

REACTIONS (2)
  - ANXIETY [None]
  - STATUS EPILEPTICUS [None]
